FAERS Safety Report 8233547-0 (Version None)
Quarter: 2012Q1

REPORT INFORMATION
  Report Type: 
  Country: None (occurrence: None)
  Receive Date: 20120326
  Receipt Date: 20120313
  Transmission Date: 20120608
  Serious: Yes (Hospitalization)
  Sender: FDA-Public Use
  Company Number: FR-JNJFOC-20120309525

PATIENT
  Sex: Female

DRUGS (6)
  1. BORIC ACID [Concomitant]
     Indication: CONJUNCTIVITIS
     Route: 065
     Dates: start: 20120123
  2. ZYRTEC [Suspect]
     Route: 048
  3. ZYRTEC [Suspect]
     Indication: CONJUNCTIVITIS
     Route: 048
     Dates: start: 20120203, end: 20120207
  4. AMOXICILLIN [Suspect]
     Indication: CONJUNCTIVITIS
     Route: 048
     Dates: start: 20120203, end: 20120205
  5. TOBREX [Concomitant]
     Indication: CONJUNCTIVITIS
     Route: 065
     Dates: start: 20120123
  6. FUCITHALMIC [Concomitant]
     Indication: CONJUNCTIVITIS
     Route: 065
     Dates: start: 20120123

REACTIONS (6)
  - VOMITING [None]
  - VERTIGO [None]
  - RASH MACULO-PAPULAR [None]
  - TOXIC SKIN ERUPTION [None]
  - EOSINOPHIL COUNT ABNORMAL [None]
  - CHILLS [None]
